FAERS Safety Report 9536851 (Version 1)
Quarter: 2013Q3

REPORT INFORMATION
  Report Type: Spontaneous
  Country: US (occurrence: None)
  Receive Date: 20130918
  Receipt Date: 20130918
  Transmission Date: 20140515
  Serious: Yes (Hospitalization)
  Sender: FDA-Public Use
  Company Number: None

PATIENT
  Age: 74 Year
  Sex: Female
  Weight: 49.9 kg

DRUGS (4)
  1. 5-FLUOROURACIL [Suspect]
  2. BEVACIZUMAB [Suspect]
  3. LEUCOVORIN CALCIUM [Suspect]
  4. ELOXATIN [Suspect]

REACTIONS (1)
  - Proteinuria [None]
